FAERS Safety Report 20623982 (Version 1)
Quarter: 2022Q1

REPORT INFORMATION
  Report Type: Spontaneous
  Country: US (occurrence: US)
  Receive Date: 20220322
  Receipt Date: 20220322
  Transmission Date: 20220423
  Serious: No
  Sender: FDA-Public Use
  Company Number: US-ALLERGAN-2112097US

PATIENT
  Age: 80 Year
  Sex: Female

DRUGS (2)
  1. LUMIGAN [Suspect]
     Active Substance: BIMATOPROST
     Indication: Intraocular pressure increased
     Dosage: 2 GTT, QD
     Route: 047
  2. ASPIRIN [Concomitant]
     Active Substance: ASPIRIN

REACTIONS (2)
  - Eye irritation [Recovered/Resolved]
  - Vision blurred [Not Recovered/Not Resolved]
